FAERS Safety Report 20665452 (Version 1)
Quarter: 2022Q2

REPORT INFORMATION
  Report Type: Report from Study
  Country: JP (occurrence: JP)
  Receive Date: 20220402
  Receipt Date: 20220402
  Transmission Date: 20220721
  Serious: Yes (Other)
  Sender: FDA-Public Use
  Company Number: JP-JNJFOC-A-CH2019-194037

PATIENT
  Age: 5 Month
  Sex: Male

DRUGS (44)
  1. OPSUMIT [Suspect]
     Active Substance: MACITENTAN
     Indication: Pulmonary arterial hypertension
     Dosage: 1 MG, QD
     Route: 048
     Dates: start: 20170515
  2. OPSUMIT [Suspect]
     Active Substance: MACITENTAN
     Dosage: IN THE MORNING
     Route: 048
     Dates: start: 20180126
  3. OPSUMIT [Suspect]
     Active Substance: MACITENTAN
     Dosage: IN THE MORNING
     Route: 048
     Dates: start: 20180127, end: 20180223
  4. OPSUMIT [Suspect]
     Active Substance: MACITENTAN
     Dosage: IN THE MORNING
     Route: 048
     Dates: start: 20180224, end: 20180427
  5. OPSUMIT [Suspect]
     Active Substance: MACITENTAN
     Dosage: IN THE MORNING
     Route: 048
     Dates: start: 20180228, end: 20180703
  6. OPSUMIT [Suspect]
     Active Substance: MACITENTAN
     Route: 048
     Dates: start: 20180704, end: 20190115
  7. OPSUMIT [Suspect]
     Active Substance: MACITENTAN
     Dosage: IN THE MORNING
     Route: 048
     Dates: start: 20190116
  8. ADCIRCA [Suspect]
     Active Substance: TADALAFIL
     Indication: Pulmonary arterial hypertension
     Dosage: 1.667 MG, TID
     Route: 048
     Dates: start: 20170515, end: 20170520
  9. ADCIRCA [Suspect]
     Active Substance: TADALAFIL
     Indication: Pulmonary arterial hypertension
     Route: 048
     Dates: end: 20171219
  10. ADCIRCA [Suspect]
     Active Substance: TADALAFIL
     Route: 048
     Dates: start: 20171220, end: 20180323
  11. ADCIRCA [Suspect]
     Active Substance: TADALAFIL
     Route: 048
     Dates: start: 20180324
  12. ADCIRCA [Suspect]
     Active Substance: TADALAFIL
     Route: 048
     Dates: end: 20180703
  13. ADCIRCA [Suspect]
     Active Substance: TADALAFIL
     Route: 048
     Dates: start: 20180704, end: 20190115
  14. ADCIRCA [Suspect]
     Active Substance: TADALAFIL
     Route: 048
     Dates: start: 20190116
  15. OXYGEN [Suspect]
     Active Substance: OXYGEN
     Indication: Product used for unknown indication
     Dosage: DOSE UNKNOWN
     Route: 055
     Dates: end: 20170518
  16. OXYGEN [Suspect]
     Active Substance: OXYGEN
     Dosage: DOSE UNKNOWN,DECREASED
     Route: 055
     Dates: start: 20170519
  17. LEVOTHYROXINE [Concomitant]
     Active Substance: LEVOTHYROXINE
     Indication: Hypothyroidism
     Route: 048
     Dates: start: 20170322, end: 20171219
  18. LEVOTHYROXINE [Concomitant]
     Active Substance: LEVOTHYROXINE
     Route: 048
     Dates: start: 20171220
  19. LEVOTHYROXINE [Concomitant]
     Active Substance: LEVOTHYROXINE
     Route: 048
  20. SODIUM FERROUS CITRATE [Concomitant]
     Active Substance: SODIUM FERROUS CITRATE
     Indication: Anaemia
     Route: 048
     Dates: start: 20170405, end: 20170517
  21. CARBOCYSTEINE [Concomitant]
     Active Substance: CARBOCYSTEINE
     Indication: Bronchitis
     Route: 048
     Dates: start: 20170310
  22. CARBOCYSTEINE [Concomitant]
     Active Substance: CARBOCYSTEINE
     Route: 048
     Dates: end: 20171219
  23. CARBOCYSTEINE [Concomitant]
     Active Substance: CARBOCYSTEINE
     Route: 048
     Dates: start: 20171220, end: 20180323
  24. CARBOCYSTEINE [Concomitant]
     Active Substance: CARBOCYSTEINE
     Route: 048
     Dates: start: 20180324, end: 20181221
  25. CARBOCYSTEINE [Concomitant]
     Active Substance: CARBOCYSTEINE
     Route: 048
     Dates: start: 20181222
  26. MUCOSAL [Concomitant]
     Indication: Bronchitis
     Route: 048
     Dates: start: 20170310
  27. MUCOSAL [Concomitant]
     Route: 048
     Dates: end: 20171219
  28. MUCOSAL [Concomitant]
     Route: 048
     Dates: start: 20171220, end: 20180323
  29. MUCOSAL [Concomitant]
     Route: 048
     Dates: start: 20180324
  30. LASIX [Concomitant]
     Active Substance: FUROSEMIDE
     Indication: Cardiac failure congestive
     Route: 048
     Dates: start: 20170322, end: 20170803
  31. LASIX [Concomitant]
     Active Substance: FUROSEMIDE
     Route: 048
     Dates: end: 20171218
  32. SPIRONOLACTONE [Concomitant]
     Active Substance: SPIRONOLACTONE
     Indication: Cardiac failure congestive
     Dates: start: 20170322, end: 20170803
  33. SPIRONOLACTONE [Concomitant]
     Active Substance: SPIRONOLACTONE
     Route: 048
     Dates: end: 20171218
  34. CHLORDIAZEPOXIDE [Concomitant]
     Active Substance: CHLORDIAZEPOXIDE
     Indication: Cardiac failure congestive
     Route: 048
     Dates: start: 20170513, end: 20170614
  35. REVATIO [Concomitant]
     Active Substance: SILDENAFIL CITRATE
     Indication: Pulmonary arterial hypertension
     Route: 048
     Dates: start: 20170512, end: 20170515
  36. FLOLAN [Concomitant]
     Active Substance: EPOPROSTENOL SODIUM
     Indication: Pulmonary arterial hypertension
     Dosage: 2NG/KG/MIN ONCE A DAYCONTINUOUS)
     Route: 042
     Dates: start: 20170512, end: 20170516
  37. NITRIC OXIDE [Concomitant]
     Active Substance: NITRIC OXIDE
     Dosage: DOSE UNKNOWN
     Route: 055
     Dates: start: 20170510
  38. ASPIRIN [Concomitant]
     Active Substance: ASPIRIN
     Route: 048
     Dates: start: 20171218
  39. PRANLUKAST [Concomitant]
     Active Substance: PRANLUKAST
     Indication: Asthma
     Route: 048
     Dates: start: 20180323, end: 20180904
  40. PRANLUKAST [Concomitant]
     Active Substance: PRANLUKAST
  41. ENALAPRIL MALEATE [Concomitant]
     Active Substance: ENALAPRIL MALEATE
     Indication: Mitral valve incompetence
     Route: 048
     Dates: start: 20180323
  42. ENALAPRIL MALEATE [Concomitant]
     Active Substance: ENALAPRIL MALEATE
     Route: 048
     Dates: end: 20180905
  43. ENALAPRIL MALEATE [Concomitant]
     Active Substance: ENALAPRIL MALEATE
     Route: 048
     Dates: start: 20180609
  44. TULOBUTEROL [Concomitant]
     Active Substance: TULOBUTEROL
     Indication: Asthma
     Route: 062
     Dates: start: 20180427

REACTIONS (11)
  - Pulmonary haemorrhage [Recovered/Resolved]
  - Mediastinitis [Recovered/Resolved]
  - Haemoptysis [Recovered/Resolved]
  - Erythema [Recovered/Resolved]
  - Swelling [Recovered/Resolved]
  - Thoracotomy [Unknown]
  - Debridement [Unknown]
  - Pulmonary congestion [Recovered/Resolved]
  - Off label use [Unknown]
  - Hepatic function abnormal [Recovered/Resolved]
  - Viral upper respiratory tract infection [Unknown]

NARRATIVE: CASE EVENT DATE: 20170519
